FAERS Safety Report 7632427-9 (Version None)
Quarter: 2011Q3

REPORT INFORMATION
  Report Type: 
  Country: None (occurrence: None)
  Receive Date: 20110725
  Receipt Date: 20100902
  Transmission Date: 20111222
  Serious: No
  Sender: FDA-Public Use
  Company Number: US-BRISTOL-MYERS SQUIBB COMPANY-15270192

PATIENT
  Age: 40 Year
  Sex: Female

DRUGS (4)
  1. COUMADIN [Suspect]
     Indication: DEEP VEIN THROMBOSIS
     Dosage: DOSE INCREASED TO 7.5MG,10MG,12.5MG IN JUL2010
     Dates: start: 20100702
  2. LOVENOX [Suspect]
     Indication: PULMONARY EMBOLISM
     Route: 065
     Dates: start: 20100702
  3. COUMADIN [Suspect]
     Indication: PULMONARY EMBOLISM
     Dosage: DOSE INCREASED TO 7.5MG,10MG,12.5MG IN JUL2010
     Dates: start: 20100702
  4. LOVENOX [Suspect]
     Indication: DEEP VEIN THROMBOSIS
     Route: 065
     Dates: start: 20100702

REACTIONS (1)
  - ANTICOAGULATION DRUG LEVEL BELOW THERAPEUTIC [None]
